FAERS Safety Report 22589777 (Version 2)
Quarter: 2023Q2

REPORT INFORMATION
  Report Type: Report from Study
  Country: US (occurrence: US)
  Receive Date: 20230612
  Receipt Date: 20230614
  Transmission Date: 20230722
  Serious: No
  Sender: FDA-Public Use
  Company Number: US-AIMMUNE THERAPEUTICS, INC.-2023AIMT00522

PATIENT

DRUGS (1)
  1. INVESTIGATIONAL PRODUCT [Suspect]
     Active Substance: INVESTIGATIONAL PRODUCT
     Indication: Clostridium difficile infection
     Dosage: 4 TABS IN SPLIT DOSES ONE DAY
     Route: 048
     Dates: start: 20160525, end: 20160525

REACTIONS (6)
  - Chest discomfort [Not Recovered/Not Resolved]
  - Pain [Unknown]
  - Abdominal discomfort [Unknown]
  - Alopecia [Unknown]
  - Hearing aid user [Not Recovered/Not Resolved]
  - Incorrect dose administered [Unknown]

NARRATIVE: CASE EVENT DATE: 20160101
